FAERS Safety Report 18381118 (Version 7)
Quarter: 2021Q1

REPORT INFORMATION
  Report Type: Spontaneous
  Country: US (occurrence: US)
  Receive Date: 20201014
  Receipt Date: 20210122
  Transmission Date: 20210419
  Serious: No
  Sender: FDA-Public Use
  Company Number: US-PFIZER INC-2020168139

PATIENT
  Age: 12 Year
  Sex: Male

DRUGS (7)
  1. GENOTROPIN [Suspect]
     Active Substance: SOMATROPIN
     Dosage: 1.2 MG, ALTERNATE DAY
     Dates: start: 202006
  2. GENOTROPIN [Suspect]
     Active Substance: SOMATROPIN
     Indication: SHORT STATURE
     Dosage: 0.8 MG, DAILY FOR 14 DAYS
     Route: 058
  3. GENOTROPIN [Suspect]
     Active Substance: SOMATROPIN
     Dosage: 0.4 MG, UNKNOWN FREQUENCY
  4. GENOTROPIN [Suspect]
     Active Substance: SOMATROPIN
     Dosage: 1.6 MG, ONCE DAILY
     Dates: start: 2020
  5. GENOTROPIN [Suspect]
     Active Substance: SOMATROPIN
     Dosage: 1.3 MG, DAILY (FOR 7 DAYS)
  6. GENOTROPIN [Suspect]
     Active Substance: SOMATROPIN
     Dosage: 1.4 MG, ALTERNATE DAY
     Dates: start: 202006
  7. GENOTROPIN [Suspect]
     Active Substance: SOMATROPIN
     Dosage: 1.4 MG, DAILY

REACTIONS (9)
  - Drug dose omission by device [Unknown]
  - Intentional product use issue [Unknown]
  - Device breakage [Unknown]
  - Wrong technique in device usage process [Unknown]
  - Therapeutic product effect incomplete [Unknown]
  - Poor quality device used [Unknown]
  - Device leakage [Unknown]
  - Product prescribing error [Unknown]
  - Intercepted product prescribing error [Unknown]

NARRATIVE: CASE EVENT DATE: 2020
